FAERS Safety Report 6895963-9 (Version None)
Quarter: 2010Q3

REPORT INFORMATION
  Report Type: 
  Country: None (occurrence: None)
  Receive Date: 20100802
  Receipt Date: 20100723
  Transmission Date: 20110219
  Serious: Yes (Death)
  Sender: FDA-Public Use
  Company Number: NL-ABBOTT-09P-114-0592848-00

PATIENT
  Sex: Male
  Weight: 131 kg

DRUGS (23)
  1. HUMIRA [Suspect]
     Indication: CROHN'S DISEASE
     Dosage: 2X 40MG
     Route: 058
     Dates: start: 20090727
  2. AZTHIOPRINE [Concomitant]
     Indication: IRRITABLE BOWEL SYNDROME
  3. AZTHIOPRINE [Concomitant]
  4. DUSPATAL [Concomitant]
     Indication: IRRITABLE BOWEL SYNDROME
  5. DUSPATAL [Concomitant]
  6. PANTOZOL [Concomitant]
     Indication: IRRITABLE BOWEL SYNDROME
  7. PANTOZOL [Concomitant]
  8. CARBASALATE CALCIUM [Concomitant]
     Indication: IRRITABLE BOWEL SYNDROME
  9. CARBASALATE CALCIUM [Concomitant]
  10. DIAZEPAM [Concomitant]
     Indication: IRRITABLE BOWEL SYNDROME
  11. DIAZEPAM [Concomitant]
  12. MEBEVERINE [Concomitant]
     Indication: IRRITABLE BOWEL SYNDROME
  13. MEBEVERINE [Concomitant]
  14. FERROFUMARAT [Concomitant]
     Indication: IRRITABLE BOWEL SYNDROME
  15. FERROFUMARAT [Concomitant]
  16. PANTOPRAZOLE SODIUM [Concomitant]
     Indication: IRRITABLE BOWEL SYNDROME
  17. PANTOPRAZOLE SODIUM [Concomitant]
  18. PREDNISOLON [Concomitant]
     Indication: IRRITABLE BOWEL SYNDROME
  19. PREDNISOLON [Concomitant]
  20. SERTRALINE HYDROCHLORIDE [Concomitant]
     Indication: IRRITABLE BOWEL SYNDROME
  21. SERTRALINE HYDROCHLORIDE [Concomitant]
  22. PARACETAMOL/CODEIN [Concomitant]
     Indication: IRRITABLE BOWEL SYNDROME
     Dosage: 500/10
  23. PARACETAMOL/CODEIN [Concomitant]

REACTIONS (2)
  - BRONCHITIS [None]
  - DYSPNOEA [None]
